FAERS Safety Report 16568710 (Version 2)
Quarter: 2019Q3

REPORT INFORMATION
  Report Type: Spontaneous
  Country: US (occurrence: US)
  Receive Date: 20190713
  Receipt Date: 20190815
  Transmission Date: 20191004
  Serious: Yes (Hospitalization)
  Sender: FDA-Public Use
  Company Number: US-ROCHE-2353817

PATIENT
  Sex: Male

DRUGS (16)
  1. TIZANIDINE. [Concomitant]
     Active Substance: TIZANIDINE
  2. SAW PALMETTO [SERENOA REPENS] [Concomitant]
  3. FINASTERIDE. [Concomitant]
     Active Substance: FINASTERIDE
  4. SIMVASTATIN. [Concomitant]
     Active Substance: SIMVASTATIN
  5. PREDNISONE. [Concomitant]
     Active Substance: PREDNISONE
  6. METOPROLOL SUCCINATE. [Concomitant]
     Active Substance: METOPROLOL SUCCINATE
  7. TAMSULOSIN [Concomitant]
     Active Substance: TAMSULOSIN
  8. ADVAIR HFA [Concomitant]
     Active Substance: FLUTICASONE PROPIONATE\SALMETEROL XINAFOATE
  9. OXAPROZIN. [Concomitant]
     Active Substance: OXAPROZIN
  10. BRIMONIDINE TARTRATE. [Concomitant]
     Active Substance: BRIMONIDINE TARTRATE
  11. TRIAMTERENE HCTZ [Concomitant]
     Active Substance: HYDROCHLOROTHIAZIDE\TRIAMTERENE
  12. FELODIPINE. [Concomitant]
     Active Substance: FELODIPINE
  13. ESBRIET [Suspect]
     Active Substance: PIRFENIDONE
     Indication: IDIOPATHIC PULMONARY FIBROSIS
     Route: 048
  14. CIMETIDINE [Concomitant]
     Active Substance: CIMETIDINE
  15. CRANBERRY [VACCINIUM SPP.] [Concomitant]
  16. GLUCOSAMINE [Concomitant]
     Active Substance: GLUCOSAMINE

REACTIONS (1)
  - Pneumonia [Unknown]
